FAERS Safety Report 26058794 (Version 1)
Quarter: 2025Q4

REPORT INFORMATION
  Report Type: Spontaneous
  Country: US (occurrence: None)
  Receive Date: 20251117
  Receipt Date: 20251117
  Transmission Date: 20260117
  Serious: No
  Sender: FDA-CTU
  Company Number: None

PATIENT
  Age: 69 Year
  Sex: Male
  Weight: 97.2 kg

DRUGS (25)
  1. FASENRA [Suspect]
     Active Substance: BENRALIZUMAB
     Indication: Asthma
     Dosage: OTHER QUANTITY : 1 INJECTION(S)?OTHER FREQUENCY : 1X PER MONTH?
     Route: 030
     Dates: start: 20251023
  2. FASENRA [Suspect]
     Active Substance: BENRALIZUMAB
     Indication: Bronchiectasis
  3. LISINOPRIL [Concomitant]
     Active Substance: LISINOPRIL
  4. NP THYROID [Concomitant]
     Active Substance: LEVOTHYROXINE\LIOTHYRONINE
  5. FLOMAX [Concomitant]
     Active Substance: TAMSULOSIN HYDROCHLORIDE
  6. TESTOSTERONE [Concomitant]
     Active Substance: TESTOSTERONE
  7. XANAX [Concomitant]
     Active Substance: ALPRAZOLAM
  8. Budesonide/ Ipratropium-Albuterol [Concomitant]
  9. ASPIRIN [Concomitant]
     Active Substance: ASPIRIN
  10. DULOXETINE HYDROCHLORIDE [Concomitant]
     Active Substance: DULOXETINE HYDROCHLORIDE
  11. PREGABALIN [Concomitant]
     Active Substance: PREGABALIN
  12. EPAP [Concomitant]
  13. VITAMINS [Concomitant]
     Active Substance: VITAMINS
  14. Magnesium - Malate / Biglycinate / Threonate [Concomitant]
  15. NAC [Concomitant]
  16. COENZYME Q10 [Concomitant]
     Active Substance: DIETARY SUPPLEMENT\UBIDECARENONE
  17. HERBALS\WITHANIA SOMNIFERA ROOT [Concomitant]
     Active Substance: HERBALS\WITHANIA SOMNIFERA ROOT
  18. ACETYLCARNITINE [Concomitant]
     Active Substance: ACETYLCARNITINE
  19. QUERCETIN [Concomitant]
     Active Substance: QUERCETIN
  20. VITAMIN E [Concomitant]
     Active Substance: .ALPHA.-TOCOPHEROL
  21. VITAMIN C [Concomitant]
     Active Substance: ASCORBIC ACID
  22. VITAMIN D [Concomitant]
     Active Substance: VITAMIN D NOS
  23. FISH OIL [Concomitant]
     Active Substance: FISH OIL
  24. BERBERINE [Concomitant]
     Active Substance: BERBERINE
  25. Bergamot [Concomitant]

REACTIONS (3)
  - Fatigue [None]
  - Migraine [None]
  - Deafness unilateral [None]

NARRATIVE: CASE EVENT DATE: 20251028
